FAERS Safety Report 20502766 (Version 3)
Quarter: 2022Q4

REPORT INFORMATION
  Report Type: Spontaneous
  Country: CA (occurrence: CA)
  Receive Date: 20220222
  Receipt Date: 20221206
  Transmission Date: 20230112
  Serious: Yes (Other)
  Sender: FDA-Public Use
  Company Number: CA-SAMSUNG BIOEPIS-SB-2022-04049

PATIENT
  Age: 53 Year
  Sex: Male

DRUGS (57)
  1. INFLIXIMAB [Suspect]
     Active Substance: INFLIXIMAB
     Indication: Colitis ulcerative
     Dosage: UNKNOWN
     Route: 042
  2. INFLIXIMAB [Suspect]
     Active Substance: INFLIXIMAB
     Indication: Crohn^s disease
     Dosage: UNKNOWN
     Route: 042
  3. INFLIXIMAB [Suspect]
     Active Substance: INFLIXIMAB
     Dosage: UNKNOWN
     Route: 042
  4. INFLIXIMAB [Suspect]
     Active Substance: INFLIXIMAB
     Dosage: UNKNOWN
     Route: 042
  5. ADALIMUMAB [Suspect]
     Active Substance: ADALIMUMAB
     Indication: Deep vein thrombosis
     Dosage: UNKNOWN, SOLUTION SUBCUTANEOUS
     Route: 065
  6. ADALIMUMAB [Suspect]
     Active Substance: ADALIMUMAB
     Indication: Colitis ulcerative
  7. ASACOL [Suspect]
     Active Substance: MESALAMINE
     Indication: Colitis ulcerative
     Dosage: (ENTERIC COATED)
     Route: 065
  8. ASACOL [Suspect]
     Active Substance: MESALAMINE
     Route: 065
  9. ASACOL [Suspect]
     Active Substance: MESALAMINE
     Route: 065
  10. ASACOL [Suspect]
     Active Substance: MESALAMINE
     Route: 065
  11. ASACOL [Suspect]
     Active Substance: MESALAMINE
     Route: 065
  12. ASACOL [Suspect]
     Active Substance: MESALAMINE
     Route: 065
  13. ASACOL [Suspect]
     Active Substance: MESALAMINE
     Route: 065
  14. ASACOL [Suspect]
     Active Substance: MESALAMINE
     Route: 065
  15. BUDESONIDE [Suspect]
     Active Substance: BUDESONIDE
     Indication: Colitis ulcerative
     Dosage: UNKNOWN
     Route: 048
  16. BUDESONIDE [Suspect]
     Active Substance: BUDESONIDE
     Route: 048
  17. BUDESONIDE [Suspect]
     Active Substance: BUDESONIDE
     Dosage: UNKNOWN
     Route: 048
  18. BUDESONIDE [Suspect]
     Active Substance: BUDESONIDE
     Route: 048
  19. BUDESONIDE [Suspect]
     Active Substance: BUDESONIDE
     Route: 048
  20. BUDESONIDE [Suspect]
     Active Substance: BUDESONIDE
     Route: 048
  21. BUDESONIDE [Suspect]
     Active Substance: BUDESONIDE
     Route: 048
  22. CORTISONE ACETATE [Suspect]
     Active Substance: CORTISONE ACETATE
     Indication: Colitis ulcerative
     Route: 048
  23. HYDROCORTISONE ACETATE [Suspect]
     Active Substance: HYDROCORTISONE ACETATE
     Indication: Colitis ulcerative
     Route: 065
  24. HYDROCORTISONE ACETATE [Suspect]
     Active Substance: HYDROCORTISONE ACETATE
     Indication: Crohn^s disease
     Route: 048
  25. HYDROCORTISONE ACETATE [Suspect]
     Active Substance: HYDROCORTISONE ACETATE
     Route: 065
  26. HYDROCORTISONE ACETATE [Suspect]
     Active Substance: HYDROCORTISONE ACETATE
     Route: 048
  27. HYDROCORTISONE ACETATE [Suspect]
     Active Substance: HYDROCORTISONE ACETATE
     Dosage: UNKNOWN
     Route: 048
  28. HYDROCORTISONE ACETATE [Suspect]
     Active Substance: HYDROCORTISONE ACETATE
     Route: 048
  29. HYDROCORTISONE ACETATE [Suspect]
     Active Substance: HYDROCORTISONE ACETATE
     Dosage: UNKNOWN
     Route: 042
  30. HYDROCORTISONE ACETATE [Suspect]
     Active Substance: HYDROCORTISONE ACETATE
     Route: 065
  31. PREDNISONE [Suspect]
     Active Substance: PREDNISONE
     Indication: Colitis ulcerative
     Dosage: UNKNOWN
     Route: 065
  32. PREDNISONE [Suspect]
     Active Substance: PREDNISONE
     Route: 065
  33. WARFARIN [Suspect]
     Active Substance: WARFARIN
     Indication: Deep vein thrombosis
     Dosage: UNKNOWN
     Route: 065
  34. WARFARIN [Suspect]
     Active Substance: WARFARIN
     Indication: Crohn^s disease
     Dosage: UNKNOWN
     Route: 048
  35. WARFARIN [Suspect]
     Active Substance: WARFARIN
     Route: 048
  36. WARFARIN [Suspect]
     Active Substance: WARFARIN
     Route: 048
  37. MESALAMINE [Suspect]
     Active Substance: MESALAMINE
     Indication: Deep vein thrombosis
     Route: 065
  38. MESALAMINE [Suspect]
     Active Substance: MESALAMINE
     Indication: Colitis ulcerative
     Route: 065
  39. MESALAMINE [Suspect]
     Active Substance: MESALAMINE
     Route: 065
  40. MESALAMINE [Suspect]
     Active Substance: MESALAMINE
     Route: 065
  41. MESALAMINE [Suspect]
     Active Substance: MESALAMINE
     Route: 048
  42. MESALAMINE [Suspect]
     Active Substance: MESALAMINE
     Route: 065
  43. MESALAMINE [Suspect]
     Active Substance: MESALAMINE
     Route: 065
  44. MESALAMINE [Suspect]
     Active Substance: MESALAMINE
     Route: 048
  45. MESALAMINE [Suspect]
     Active Substance: MESALAMINE
     Dosage: UNKNOWN
     Route: 048
  46. MESALAMINE [Suspect]
     Active Substance: MESALAMINE
     Dosage: UNKNOWN
     Route: 065
  47. MESALAMINE [Suspect]
     Active Substance: MESALAMINE
     Route: 065
  48. MESALAMINE [Suspect]
     Active Substance: MESALAMINE
     Indication: Colitis ulcerative
     Dosage: (DELAYED AND EXTENDED RELEASE)
     Route: 065
  49. MESALAMINE [Suspect]
     Active Substance: MESALAMINE
     Dosage: UNKNOWN
     Route: 065
  50. MESALAMINE [Suspect]
     Active Substance: MESALAMINE
     Route: 065
  51. MESALAMINE [Suspect]
     Active Substance: MESALAMINE
     Dosage: UNKNOWN
     Route: 042
  52. MESALAMINE [Suspect]
     Active Substance: MESALAMINE
     Dosage: UNKNOWN
     Route: 048
  53. MESALAMINE [Suspect]
     Active Substance: MESALAMINE
     Dosage: UNKNOWN
     Route: 048
  54. SULFASALAZINE [Concomitant]
     Active Substance: SULFASALAZINE
     Indication: Colitis ulcerative
     Dosage: UNKNOWN
     Route: 065
  55. SULFASALAZINE [Concomitant]
     Active Substance: SULFASALAZINE
     Dosage: UNKNOWN
     Route: 065
  56. SULFASALAZINE [Concomitant]
     Active Substance: SULFASALAZINE
     Dosage: UNKNOWN
     Route: 065
  57. METHOTREXATE [Concomitant]
     Active Substance: METHOTREXATE
     Indication: Product used for unknown indication
     Dosage: UNKNOWN
     Route: 065

REACTIONS (13)
  - Bronchiectasis [Unknown]
  - Colitis ulcerative [Unknown]
  - Condition aggravated [Unknown]
  - Deep vein thrombosis [Unknown]
  - Frequent bowel movements [Unknown]
  - Impaired quality of life [Unknown]
  - Loss of personal independence in daily activities [Unknown]
  - Weight decreased [Unknown]
  - Drug ineffective [Unknown]
  - Off label use [Unknown]
  - Medication error [Unknown]
  - Product use in unapproved indication [Unknown]
  - Product use in unapproved indication [Unknown]
